FAERS Safety Report 23074439 (Version 1)
Quarter: 2023Q4

REPORT INFORMATION
  Report Type: Spontaneous
  Country: US (occurrence: None)
  Receive Date: 20231016
  Receipt Date: 20231016
  Transmission Date: 20240109
  Serious: No
  Sender: FDA-Public Use
  Company Number: None

PATIENT
  Sex: 0

DRUGS (1)
  1. MESALAMINE [Suspect]
     Active Substance: MESALAMINE

REACTIONS (5)
  - Irritable bowel syndrome [None]
  - Frequent bowel movements [None]
  - Anaemia [None]
  - Full blood count decreased [None]
  - Asthenia [None]
